FAERS Safety Report 4747359-3 (Version None)
Quarter: 2005Q3

REPORT INFORMATION
  Report Type: 
  Country: None (occurrence: None)
  Receive Date: 20050817
  Receipt Date: 20050517
  Transmission Date: 20060218
  Serious: Yes (Hospitalization, Disabling)
  Sender: FDA-Public Use
  Company Number: DE-MERCK-0505DEU00125

PATIENT
  Age: 38 Year
  Sex: Male
  Weight: 78 kg

DRUGS (14)
  1. RABEPRAZOLE SODIUM [Concomitant]
     Route: 065
  2. MINOCYCLINE [Concomitant]
     Route: 065
  3. CALCIUM GLUCONATE AND CALCIUM PHOSPHATE TRIBASIC AND CHOLECALCIFEROL [Concomitant]
     Route: 065
  4. MELOXICAM [Concomitant]
     Route: 065
  5. FOLIC ACID [Concomitant]
     Route: 065
  6. VIOXX [Suspect]
     Indication: RHEUMATOID ARTHRITIS
     Route: 048
     Dates: start: 20030528, end: 20031027
  7. VIOXX [Suspect]
     Route: 048
     Dates: start: 20031027, end: 20040101
  8. METHOTREXATE SODIUM [Concomitant]
     Route: 065
     Dates: start: 20030501
  9. METHOTREXATE SODIUM [Concomitant]
     Route: 065
     Dates: start: 20031027, end: 20040701
  10. METHOTREXATE SODIUM [Concomitant]
     Route: 065
     Dates: start: 20030528, end: 20031027
  11. METHYLPREDNISOLONE [Concomitant]
     Route: 065
     Dates: start: 20030528
  12. METHYLPREDNISOLONE [Concomitant]
     Route: 065
  13. METHYLPREDNISOLONE [Concomitant]
     Route: 065
  14. METHYLPREDNISOLONE [Concomitant]
     Route: 065
     Dates: start: 20030501

REACTIONS (6)
  - ACNE [None]
  - BURSITIS [None]
  - DEEP VEIN THROMBOSIS [None]
  - HEADACHE [None]
  - INFECTION [None]
  - RASH [None]
